FAERS Safety Report 15758124 (Version 3)
Quarter: 2019Q1

REPORT INFORMATION
  Report Type: Report from Study
  Country: DE (occurrence: DE)
  Receive Date: 20181225
  Receipt Date: 20190220
  Transmission Date: 20190417
  Serious: Yes (Death, Hospitalization, Other)
  Sender: FDA-Public Use
  Company Number: DE-TAKEDA-2018TUS036540

PATIENT
  Age: 47 Year
  Sex: Female

DRUGS (1)
  1. BRIGATINIB [Suspect]
     Active Substance: BRIGATINIB
     Indication: NON-SMALL CELL LUNG CANCER
     Dosage: UNK
     Route: 065
     Dates: start: 20180724

REACTIONS (16)
  - Pathological fracture [Unknown]
  - Hepatic failure [Unknown]
  - Microcytic anaemia [Unknown]
  - Sinus tachycardia [Unknown]
  - Asthenia [Unknown]
  - Dyspnoea exertional [Unknown]
  - Pyrexia [Unknown]
  - General physical health deterioration [Unknown]
  - Transaminases increased [Unknown]
  - Faeces discoloured [Unknown]
  - C-reactive protein increased [Unknown]
  - Non-small cell lung cancer [Fatal]
  - Hypoglycaemia [Unknown]
  - Hepatomegaly [Unknown]
  - Abdominal discomfort [Unknown]
  - Diarrhoea [Unknown]

NARRATIVE: CASE EVENT DATE: 20180809
